FAERS Safety Report 9336413 (Version 1)
Quarter: 2013Q2

REPORT INFORMATION
  Report Type: Spontaneous
  Country: US (occurrence: US)
  Receive Date: 20130607
  Receipt Date: 20130607
  Transmission Date: 20140414
  Serious: Yes (Other)
  Sender: FDA-Public Use
  Company Number: US-BAYER-2013-067594

PATIENT
  Sex: 0

DRUGS (3)
  1. ALKA-SELTZER ORIGINAL [Suspect]
  2. DAYQUIL [DEXTROMET HBR,GUAIF,PARACET,PSEUDOEPH HCL] [Suspect]
  3. NYQUIL [Suspect]

REACTIONS (1)
  - Unevaluable event [None]
